FAERS Safety Report 8395735-2 (Version None)
Quarter: 2012Q2

REPORT INFORMATION
  Report Type: 
  Country: None (occurrence: None)
  Receive Date: 20120530
  Receipt Date: 20120521
  Transmission Date: 20120825
  Serious: Yes (Hospitalization)
  Sender: FDA-Public Use
  Company Number: BR-ASTRAZENECA-2012SE33047

PATIENT
  Age: 56 Year
  Sex: Male

DRUGS (6)
  1. INDAPAMIDE [Concomitant]
     Route: 048
  2. SOMALGIN CARDIO [Concomitant]
     Route: 048
  3. PLAVIX [Concomitant]
     Route: 048
  4. SUBSTRATE [Concomitant]
     Route: 048
  5. CRESTOR [Suspect]
     Indication: BLOOD CHOLESTEROL INCREASED
     Route: 048
     Dates: start: 20110101, end: 20120501
  6. CRESTOR [Suspect]
     Route: 048

REACTIONS (1)
  - ACUTE MYOCARDIAL INFARCTION [None]
